FAERS Safety Report 8758954 (Version 2)
Quarter: 2012Q4

REPORT INFORMATION
  Report Type: 
  Country: US (occurrence: US)
  Receive Date: 20120829
  Receipt Date: 20121022
  Transmission Date: 20130627
  Serious: Yes (Other)
  Sender: FDA-Public Use
  Company Number: US-CELGENEUS-163-21880-12082324

PATIENT
  Age: 71 Year
  Sex: Female
  Weight: 59.02 kg

DRUGS (6)
  1. REVLIMID [Suspect]
     Indication: MULTIPLE MYELOMA
     Dosage: 18.75 Milligram
     Route: 048
     Dates: start: 20120529, end: 20120706
  2. REVLIMID [Suspect]
     Dosage: 7.5 Milligram
     Route: 048
     Dates: start: 20120821
  3. CALCIUM + MAGNESIUM + D [Concomitant]
     Indication: ROUTINE HEALTH MAINTENANCE
     Dosage: 400mg-133
     Route: 048
  4. DECADRON [Concomitant]
     Indication: MULTIPLE MYELOMA
     Dosage: 5.7143 Milligram
     Route: 065
     Dates: start: 20120529
  5. OXYCODONE [Concomitant]
     Indication: PAIN
     Dosage: 5 Milligram
     Route: 065
     Dates: start: 201205
  6. RANITIDINE [Concomitant]
     Indication: PROPHYLAXIS
     Dosage: 150 Milligram
     Route: 065
     Dates: start: 20120521, end: 20120821

REACTIONS (1)
  - Electrocardiogram QT prolonged [Recovered/Resolved]
